FAERS Safety Report 10904672 (Version 2)
Quarter: 2015Q2

REPORT INFORMATION
  Report Type: Spontaneous
  Country: US (occurrence: US)
  Receive Date: 20150311
  Receipt Date: 20150410
  Transmission Date: 20150821
  Serious: Yes (Other)
  Sender: FDA-Public Use
  Company Number: US-BAYER-2015-034980

PATIENT
  Sex: Female

DRUGS (4)
  1. AMPYRA [Suspect]
     Active Substance: DALFAMPRIDINE
     Dosage: 10 MG, UNK
     Route: 048
  2. BETASERON [Suspect]
     Active Substance: INTERFERON BETA-1B
  3. AVONEX [Suspect]
     Active Substance: INTERFERON BETA-1A
  4. COPAXONE [Suspect]
     Active Substance: GLATIRAMER ACETATE
     Dosage: UNK

REACTIONS (4)
  - Drug hypersensitivity [Unknown]
  - Gait disturbance [Unknown]
  - Multiple sclerosis relapse [Unknown]
  - Malaise [Unknown]
